FAERS Safety Report 4881562-7 (Version None)
Quarter: 2005Q4

REPORT INFORMATION
  Report Type: 
  Country: None (occurrence: None)
  Receive Date: 20051209
  Receipt Date: 20050801
  Transmission Date: 20060501
  Serious: Yes (Other)
  Sender: FDA-Public Use
  Company Number: USA-2005-0020917

PATIENT
  Age: 43 Year
  Sex: Male

DRUGS (1)
  1. OXYCONTIN [Suspect]
     Indication: PAIN
     Dosage: 200 M, SEE TEXT, ORAL
     Route: 048

REACTIONS (2)
  - DRUG ABUSER [None]
  - DRUG DEPENDENCE [None]
